FAERS Safety Report 10463111 (Version 3)
Quarter: 2014Q4

REPORT INFORMATION
  Report Type: Report from Study
  Country: CA (occurrence: CA)
  Receive Date: 20140919
  Receipt Date: 20141215
  Transmission Date: 20150528
  Serious: Yes (Other)
  Sender: FDA-Public Use
  Company Number: CA-AMGEN-CANSP2014070864

PATIENT
  Age: 86 Year
  Sex: Female

DRUGS (2)
  1. PROLIA [Suspect]
     Active Substance: DENOSUMAB
     Indication: OSTEOPOROSIS POSTMENOPAUSAL
     Dosage: 60 MG, Q6MO
     Route: 058
     Dates: start: 20140730
  2. GLUCOSAMINE [Concomitant]
     Active Substance: GLUCOSAMINE

REACTIONS (12)
  - Rash pruritic [Unknown]
  - Pain [Unknown]
  - Tongue blistering [Recovered/Resolved]
  - Malaise [Unknown]
  - Acne [Unknown]
  - Urinary tract infection [Unknown]
  - Bone density decreased [Unknown]
  - Amnesia [Unknown]
  - Dermatitis allergic [Not Recovered/Not Resolved]
  - Hypoacusis [Unknown]
  - Drug hypersensitivity [Recovered/Resolved]
  - Swelling face [Recovered/Resolved]

NARRATIVE: CASE EVENT DATE: 201407
